FAERS Safety Report 8911302 (Version 2)
Quarter: 2013Q4

REPORT INFORMATION
  Report Type: Spontaneous
  Country: US (occurrence: US)
  Receive Date: 20121116
  Receipt Date: 20131217
  Transmission Date: 20140711
  Serious: No
  Sender: FDA-Public Use
  Company Number: US-GLAXOSMITHKLINE-A0996038A

PATIENT
  Age: 61 Year
  Sex: Female
  Weight: 100.5 kg

DRUGS (1)
  1. VOTRIENT [Suspect]
     Indication: PRODUCT USED FOR UNKNOWN INDICATION
     Dosage: 800MG PER DAY
     Route: 065
     Dates: start: 20120723

REACTIONS (2)
  - Upper respiratory tract infection [Recovered/Resolved]
  - Laboratory test abnormal [Recovered/Resolved]
